FAERS Safety Report 21074926 (Version 1)
Quarter: 2022Q3

REPORT INFORMATION
  Report Type: Spontaneous
  Country: US (occurrence: None)
  Receive Date: 20220712
  Receipt Date: 20220712
  Transmission Date: 20221027
  Serious: No
  Sender: FDA-Public Use
  Company Number: None

PATIENT
  Age: 74 Year
  Sex: Male
  Weight: 108.86 kg

DRUGS (38)
  1. BEXAROTENE [Suspect]
     Active Substance: BEXAROTENE
     Indication: Cutaneous T-cell lymphoma
     Dosage: FREQUENCY : DAILY;?
     Route: 048
  2. BEXAROTENE [Suspect]
     Active Substance: BEXAROTENE
     Indication: Lymphadenopathy
  3. BEXAROTENE [Suspect]
     Active Substance: BEXAROTENE
     Indication: Lymphadenopathy
  4. ALBUTEROL [Concomitant]
     Active Substance: ALBUTEROL
  5. ATORVASTATIN [Concomitant]
  6. BENZOYL PEROXIDE [Concomitant]
  7. BRILINTA [Concomitant]
     Active Substance: TICAGRELOR
  8. CALCIUM CARBONATE CALCIUM [Concomitant]
  9. CITALOPRAM [Concomitant]
  10. CLOBETASOL [Concomitant]
  11. DILTIAZEM [Concomitant]
  12. DIPHENOXYLATE-ATROPINE [Concomitant]
  13. DOCUSATE SODIUM [Concomitant]
  14. DULOXETINE ELIQUIS [Concomitant]
  15. FUROSEMIDE [Concomitant]
  16. HEPARIN [Concomitant]
  17. HUMALOG [Concomitant]
  18. HYDRALAZINE [Concomitant]
  19. HYDROCHLOROTHIAZIDE [Concomitant]
  20. HYDROCORTISONE [Concomitant]
  21. HYDROXYZINE [Concomitant]
  22. INTERFERON ALFA-2B [Concomitant]
  23. LIDOCAINE-PRILOCAINE [Concomitant]
  24. LOPERAMIDE [Concomitant]
  25. LORATADINE [Concomitant]
  26. MAGNESIUM OXIDE [Concomitant]
  27. METFORMIN [Concomitant]
  28. NEURIVA [Concomitant]
  29. NORMAL SALINE [Concomitant]
  30. NOVOLIN NOS [Concomitant]
     Active Substance: INSULIN HUMAN
  31. OXYCODONE-ACETAMINOOPHEN [Concomitant]
  32. PREGABALIN [Concomitant]
     Active Substance: PREGABALIN
  33. TAMSULOSIN [Concomitant]
  34. TRADJENTA [Concomitant]
  35. TRAZODONE [Concomitant]
  36. TRIAMCINOLONE [Concomitant]
  37. ACETONIDE [Concomitant]
  38. VITAMIN B-2 [Concomitant]

REACTIONS (1)
  - Skin discharge [None]
